FAERS Safety Report 5726707-1 (Version None)
Quarter: 2008Q2

REPORT INFORMATION
  Report Type: 
  Country: None (occurrence: None)
  Receive Date: 20080502
  Receipt Date: 20080421
  Transmission Date: 20081010
  Serious: Yes (Other)
  Sender: FDA-Public Use
  Company Number: US-PFIZER INC-2008035891

PATIENT
  Sex: Male
  Weight: 99.8 kg

DRUGS (38)
  1. NEURONTIN [Suspect]
     Indication: NEURALGIA
  2. GABAPENTIN [Suspect]
     Indication: NEURALGIA
  3. ACIPHEX [Concomitant]
  4. ADVAIR HFA [Concomitant]
  5. ACETYLSALICYLIC ACID SRT [Concomitant]
  6. ACETYLSALICYLIC ACID SRT [Concomitant]
  7. LACTULOSE [Concomitant]
  8. LACTULOSE [Concomitant]
  9. LIPITOR [Concomitant]
  10. LIPITOR [Concomitant]
  11. LOPRESSOR [Concomitant]
  12. LOPRESSOR [Concomitant]
  13. MOBIC [Concomitant]
  14. MOBIC [Concomitant]
  15. HYOSCYAMINE SULFATE [Concomitant]
  16. HYOSCYAMINE SULFATE [Concomitant]
  17. PLAVIX [Concomitant]
  18. PLAVIX [Concomitant]
  19. POTASSIUM CHLORIDE [Concomitant]
  20. POTASSIUM CHLORIDE [Concomitant]
  21. PROMETHAZINE [Concomitant]
  22. PROMETHAZINE [Concomitant]
  23. REGLAN [Concomitant]
  24. REGLAN [Concomitant]
  25. MONTELUKAST SODIUM [Concomitant]
  26. MONTELUKAST SODIUM [Concomitant]
  27. VALIUM [Concomitant]
  28. VALIUM [Concomitant]
  29. XANAX [Concomitant]
  30. XANAX [Concomitant]
  31. ZANAFLEX [Concomitant]
  32. ZANAFLEX [Concomitant]
  33. MS CONTIN [Concomitant]
  34. MS CONTIN [Concomitant]
  35. MSIR [Concomitant]
  36. NITROGLYCERIN [Concomitant]
  37. DRUG, UNSPECIFIED [Concomitant]
  38. DRUG, UNSPECIFIED [Concomitant]

REACTIONS (5)
  - DRUG INEFFECTIVE [None]
  - FIBROMYALGIA [None]
  - MYALGIA [None]
  - NEUROPATHY PERIPHERAL [None]
  - SURGERY [None]
